FAERS Safety Report 7069716-5 (Version None)
Quarter: 2010Q4

REPORT INFORMATION
  Report Type: 
  Country: None (occurrence: None)
  Receive Date: 20101028
  Receipt Date: 20100706
  Transmission Date: 20110411
  Serious: No
  Sender: FDA-Public Use
  Company Number: US-WYE-H15256310

PATIENT
  Sex: Female

DRUGS (1)
  1. NORPLANT SYSTEM [Suspect]
     Indication: CONTRACEPTION
     Dosage: SIX CAPSULES
     Route: 058
     Dates: start: 19940101

REACTIONS (2)
  - DEVICE DISLOCATION [None]
  - INAPPROPRIATE SCHEDULE OF DRUG ADMINISTRATION [None]
